FAERS Safety Report 11618687 (Version 1)
Quarter: 2015Q4

REPORT INFORMATION
  Report Type: Report from Study
  Country: IE (occurrence: IE)
  Receive Date: 20151012
  Receipt Date: 20151012
  Transmission Date: 20160304
  Serious: Yes (Death, Life-Threatening, Hospitalization, Other)
  Sender: FDA-Public Use
  Company Number: IE-AMGEN-IRLSL2015105388

PATIENT
  Age: 75 Year
  Sex: Male

DRUGS (10)
  1. PREDNISOLONE. [Concomitant]
     Active Substance: PREDNISOLONE
     Dosage: 100 MG, AS PER CHEMO REGIM
  2. VALTREX [Concomitant]
     Active Substance: VALACYCLOVIR HYDROCHLORIDE
     Dosage: 500 MG, BID
  3. DOMERID [Concomitant]
     Dosage: 10 MG, AS NECESSARY
  4. ESOMEPRAZOLE [Concomitant]
     Active Substance: ESOMEPRAZOLE
     Dosage: 40 MG, QD
  5. LYRICA [Concomitant]
     Active Substance: PREGABALIN
     Dosage: 25 MG, BID
  6. CALCICHEW [Concomitant]
     Active Substance: CALCIUM CARBONATE
     Dosage: 500 MG, BID
  7. VALOID                             /00014902/ [Concomitant]
     Active Substance: CYCLIZINE HYDROCHLORIDE
     Dosage: 50 MG, UNK
  8. NEULASTA [Suspect]
     Active Substance: PEGFILGRASTIM
     Indication: B-CELL LYMPHOMA
     Dosage: 6 MG, UNK
     Route: 058
     Dates: start: 20150819, end: 20150819
  9. MOTILIUM [Concomitant]
     Active Substance: DOMPERIDONE
     Dosage: 10 MG, TID
  10. TIPURIC [Concomitant]
     Dosage: 300 MG, QD

REACTIONS (2)
  - Death [Fatal]
  - Hospitalisation [Unknown]

NARRATIVE: CASE EVENT DATE: 20150929
